FAERS Safety Report 8133633-X (Version None)
Quarter: 2012Q1

REPORT INFORMATION
  Report Type: 
  Country: None (occurrence: None)
  Receive Date: 20120213
  Receipt Date: 20120203
  Transmission Date: 20120608
  Serious: Yes (Hospitalization, Other)
  Sender: FDA-Public Use
  Company Number: NL-ROCHE-1024227

PATIENT
  Age: 48 Year
  Sex: Female

DRUGS (2)
  1. FLUOROURACIL [Suspect]
     Indication: COLON CANCER METASTATIC
     Route: 042
  2. CAPECITABINE [Suspect]
     Indication: COLON CANCER METASTATIC
     Route: 048

REACTIONS (7)
  - DIHYDROPYRIMIDINE DEHYDROGENASE DEFICIENCY [None]
  - MUCOSAL INFLAMMATION [None]
  - SUPERINFECTION VIRAL [None]
  - SKIN HYPERPIGMENTATION [None]
  - BONE MARROW FAILURE [None]
  - RASH [None]
  - LUNG INFECTION PSEUDOMONAL [None]
